FAERS Safety Report 12265253 (Version 1)
Quarter: 2016Q2

REPORT INFORMATION
  Report Type: Spontaneous
  Country: US (occurrence: US)
  Receive Date: 20160413
  Receipt Date: 20160413
  Transmission Date: 20160815
  Serious: Yes (Other)
  Sender: FDA-Public Use
  Company Number: US-TEVA-649861USA

PATIENT
  Sex: Male
  Weight: 34.5 kg

DRUGS (5)
  1. ACTIQ [Suspect]
     Active Substance: FENTANYL CITRATE
     Indication: EPIDERMOLYSIS BULLOSA
     Dosage: 1200 MICROGRAM DAILY;
     Dates: start: 2010
  2. METHADONE [Concomitant]
     Active Substance: METHADONE HYDROCHLORIDE
     Indication: ACQUIRED EPIDERMOLYSIS BULLOSA
  3. ACTIQ [Suspect]
     Active Substance: FENTANYL CITRATE
     Dosage: PRIOR TO DRESSING CHANGES
  4. NEURONTIN [Concomitant]
     Active Substance: GABAPENTIN
  5. MORPHINE [Concomitant]
     Active Substance: MORPHINE
     Indication: ACQUIRED EPIDERMOLYSIS BULLOSA

REACTIONS (5)
  - Haemoglobin decreased [Not Recovered/Not Resolved]
  - Blood albumin decreased [Not Recovered/Not Resolved]
  - Product use issue [Unknown]
  - Drug administered to patient of inappropriate age [Unknown]
  - Malnutrition [Not Recovered/Not Resolved]

NARRATIVE: CASE EVENT DATE: 2010
